FAERS Safety Report 9160740 (Version 1)
Quarter: 2013Q1

REPORT INFORMATION
  Report Type: Spontaneous
  Country: US (occurrence: US)
  Receive Date: 20130313
  Receipt Date: 20130313
  Transmission Date: 20140127
  Serious: Yes (Hospitalization)
  Sender: FDA-Public Use
  Company Number: US-BAYER-2013-029527

PATIENT
  Age: 28 Year
  Sex: Female
  Weight: 90.7 kg

DRUGS (6)
  1. YASMIN [Suspect]
     Indication: CONTRACEPTION
  2. HYDROCODONE [Concomitant]
  3. PREDNISONE [Concomitant]
  4. FLUOCINONIDE [FLUOCINONIDE] [Concomitant]
  5. NAPROXEN [Concomitant]
  6. CITALOPRAM [Concomitant]

REACTIONS (2)
  - Pulmonary embolism [None]
  - Deep vein thrombosis [None]
